FAERS Safety Report 24717112 (Version 1)
Quarter: 2024Q4

REPORT INFORMATION
  Report Type: Spontaneous
  Country: US (occurrence: None)
  Receive Date: 20241209
  Receipt Date: 20241209
  Transmission Date: 20250115
  Serious: No
  Sender: Public
  Company Number: None

PATIENT
  Age: 82 Year
  Sex: Female

DRUGS (1)
  1. JAKAFI [Suspect]
     Active Substance: RUXOLITINIB
     Dosage: 10 MG TWICE  DAY ORAL
     Route: 048
     Dates: start: 20241107

REACTIONS (2)
  - Tremor [None]
  - Diarrhoea [None]

NARRATIVE: CASE EVENT DATE: 20241209
